FAERS Safety Report 24930092 (Version 1)
Quarter: 2025Q1

REPORT INFORMATION
  Report Type: Spontaneous
  Country: GB (occurrence: GB)
  Receive Date: 20250205
  Receipt Date: 20250205
  Transmission Date: 20250409
  Serious: Yes (Other)
  Sender: ESPERION THERAPEUTICS
  Company Number: GB-MHRA-EMIS-8873-515e3954-04e6-4681-bcab-f711a188f7e8

PATIENT

DRUGS (3)
  1. BEMPEDOIC ACID [Suspect]
     Active Substance: BEMPEDOIC ACID
     Indication: Product used for unknown indication
     Dosage: 1 DOSAGE FORM, QD
     Route: 065
     Dates: start: 20241017, end: 20250117
  2. DEPO MEDRONE [Concomitant]
     Indication: Product used for unknown indication
     Route: 065
     Dates: start: 20241023, end: 20241205
  3. SPIKEVAX [Concomitant]
     Active Substance: CX-046684
     Indication: Product used for unknown indication
     Route: 030
     Dates: start: 20241023

REACTIONS (2)
  - Gastrooesophageal reflux disease [Unknown]
  - Pruritus [Unknown]
